FAERS Safety Report 24073247 (Version 1)
Quarter: 2024Q3

REPORT INFORMATION
  Report Type: Report from Study
  Country: ES (occurrence: ES)
  Receive Date: 20240710
  Receipt Date: 20240710
  Transmission Date: 20241016
  Serious: Yes (Hospitalization)
  Sender: ORGANON
  Company Number: None

PATIENT
  Age: 76 Year
  Sex: Female

DRUGS (7)
  1. MIRTAZAPINE [Suspect]
     Active Substance: MIRTAZAPINE
     Dosage: UNK
     Dates: start: 20240403
  2. VENLAFAXINE HYDROCHLORIDE [Suspect]
     Active Substance: VENLAFAXINE HYDROCHLORIDE
     Dosage: UNK (30 TABLETS)
     Dates: start: 20240229
  3. FENOFIBRATE [Concomitant]
     Active Substance: FENOFIBRATE
     Dosage: UNK
     Dates: start: 20140805, end: 20240517
  4. CLORAZEPATE DIPOTASSIUM [Concomitant]
     Active Substance: CLORAZEPATE DIPOTASSIUM
     Dosage: UNK (GENERIC DRUG EFG, 30 CAPSULES)
     Dates: start: 20240321
  5. LEVOTHYROXINE SODIUM [Concomitant]
     Active Substance: LEVOTHYROXINE SODIUM
     Dosage: UNK (100 TABLETS)
     Dates: start: 20140805
  6. TROXERUTIN [Concomitant]
     Active Substance: TROXERUTIN
     Dosage: UNK
     Dates: start: 20160805
  7. OMEPRAZOLE [Concomitant]
     Active Substance: OMEPRAZOLE
     Dosage: UNK
     Dates: start: 20140805

REACTIONS (2)
  - Bradyphrenia [Recovered/Resolved]
  - Hypokinetic dysarthria [Recovering/Resolving]

NARRATIVE: CASE EVENT DATE: 20240401
